FAERS Safety Report 25351207 (Version 3)
Quarter: 2025Q2

REPORT INFORMATION
  Report Type: Spontaneous
  Country: JP (occurrence: JP)
  Receive Date: 20250523
  Receipt Date: 20250616
  Transmission Date: 20250717
  Serious: Yes (Hospitalization, Other)
  Sender: AMGEN
  Company Number: JP-BEH-2025205683

PATIENT
  Age: 76 Year
  Sex: Male
  Weight: 71.9 kg

DRUGS (19)
  1. TAVNEOS [Suspect]
     Active Substance: AVACOPAN
     Indication: Microscopic polyangiitis
     Dosage: 30 MG, BID
     Route: 048
     Dates: start: 20250210, end: 20250427
  2. RITUXIMAB [Concomitant]
     Active Substance: RITUXIMAB
     Indication: Microscopic polyangiitis
     Route: 040
     Dates: start: 20250306, end: 20250306
  3. BOS TAURUS ADRENAL CORTEX CORTICOSTEROIDS [Concomitant]
     Active Substance: BOS TAURUS ADRENAL CORTEX CORTICOSTEROIDS
     Indication: Anti-neutrophil cytoplasmic antibody positive vasculitis
  4. PREDONINE [Concomitant]
     Active Substance: PREDNISOLONE
     Indication: Microscopic polyangiitis
     Dosage: 10 MG
     Route: 048
     Dates: end: 20250506
  5. PREDONINE [Concomitant]
     Active Substance: PREDNISOLONE
     Dosage: 5 MG, QD
     Route: 048
     Dates: start: 20250507
  6. LINAGLIPTIN [Concomitant]
     Active Substance: LINAGLIPTIN
     Route: 048
     Dates: end: 20250429
  7. DAPAGLIFLOZIN [Concomitant]
     Active Substance: DAPAGLIFLOZIN
     Route: 048
     Dates: end: 20250429
  8. ASPIRIN [Concomitant]
     Active Substance: ASPIRIN
     Route: 048
  9. VONOPRAZAN FUMARATE [Concomitant]
     Active Substance: VONOPRAZAN FUMARATE
     Route: 048
  10. ROSUVASTATIN CALCIUM [Concomitant]
     Active Substance: ROSUVASTATIN CALCIUM
     Route: 048
     Dates: end: 20250501
  11. BISOPROLOL FUMARATE [Concomitant]
     Active Substance: BISOPROLOL FUMARATE
     Route: 048
  12. NICORANDIL [Concomitant]
     Active Substance: NICORANDIL
     Route: 048
  13. ICOSAPENT ETHYL [Concomitant]
     Active Substance: ICOSAPENT ETHYL
     Route: 048
  14. MIGLITOL [Concomitant]
     Active Substance: MIGLITOL
     Route: 048
     Dates: end: 20250429
  15. MITIGLINIDE CALCIUM ANHYDROUS [Concomitant]
     Active Substance: MITIGLINIDE CALCIUM ANHYDROUS
     Route: 048
     Dates: end: 20250429
  16. SULFAMETHOXAZOLE\TRIMETHOPRIM [Concomitant]
     Active Substance: SULFAMETHOXAZOLE\TRIMETHOPRIM
     Route: 048
     Dates: end: 20250507
  17. PIPERACILLIN SODIUM\TAZOBACTAM SODIUM [Concomitant]
     Active Substance: PIPERACILLIN SODIUM\TAZOBACTAM SODIUM
     Route: 040
     Dates: end: 20250517
  18. MEROPENEM [Concomitant]
     Active Substance: MEROPENEM
     Route: 040
     Dates: start: 20250518
  19. NOREPINEPHRINE [Concomitant]
     Active Substance: NOREPINEPHRINE
     Indication: Blood pressure decreased
     Dates: start: 20250517

REACTIONS (8)
  - Vanishing bile duct syndrome [Not Recovered/Not Resolved]
  - Jaundice [Not Recovered/Not Resolved]
  - Fatigue [Not Recovered/Not Resolved]
  - Decreased appetite [Not Recovered/Not Resolved]
  - Suspected drug-induced liver injury [Not Recovered/Not Resolved]
  - Herpes zoster [Unknown]
  - Blood bilirubin increased [Unknown]
  - Blister [Unknown]

NARRATIVE: CASE EVENT DATE: 20250401
